FAERS Safety Report 9354763 (Version 1)
Quarter: 2013Q2

REPORT INFORMATION
  Report Type: Spontaneous
  Country: AU (occurrence: AU)
  Receive Date: 20130619
  Receipt Date: 20130619
  Transmission Date: 20140414
  Serious: Yes (Hospitalization)
  Sender: FDA-Public Use
  Company Number: AU-GE HEALTHCARE MEDICAL DIAGNOSTICS-OMPQ-NO-1306S-0745

PATIENT
  Age: 65 Year
  Sex: Female

DRUGS (3)
  1. OMNIPAQUE [Suspect]
     Indication: HYPERTENSION
     Route: 042
     Dates: start: 20130613, end: 20130613
  2. OMNIPAQUE [Suspect]
     Indication: ABDOMINAL PAIN
  3. OMNIPAQUE [Suspect]
     Indication: DIAGNOSTIC PROCEDURE

REACTIONS (4)
  - Swelling [Recovered/Resolved]
  - Rash [Recovered/Resolved]
  - Pruritus [Recovered/Resolved]
  - Dyspnoea [Recovered/Resolved]
